FAERS Safety Report 11979079 (Version 1)
Quarter: 2016Q1

REPORT INFORMATION
  Report Type: Spontaneous
  Country: US (occurrence: US)
  Receive Date: 20160129
  Receipt Date: 20160129
  Transmission Date: 20160526
  Serious: Yes (Other)
  Sender: FDA-Public Use
  Company Number: US-SMITH AND NEPHEW, INC-2016SMT00023

PATIENT
  Age: 56 Year
  Sex: Male
  Weight: 113.38 kg

DRUGS (5)
  1. UNSPECIFIED CHOLESTEROL PRESSURE MEDICATION(S) [Concomitant]
     Dosage: UNK
  2. MULTIVITAMIN [Concomitant]
     Active Substance: VITAMINS
     Dosage: UNK
  3. IRON [Concomitant]
     Active Substance: IRON
     Dosage: UNK
  4. UNSPECIFIED BLOOD PRESSURE MEDICATION(S) [Concomitant]
     Dosage: UNK
  5. REGRANEX [Suspect]
     Active Substance: BECAPLERMIN
     Indication: DIABETIC FOOT
     Dosage: UNK, 1X/DAY
     Route: 061
     Dates: start: 201512, end: 20160105

REACTIONS (2)
  - Bone disorder [Unknown]
  - Wound complication [Unknown]

NARRATIVE: CASE EVENT DATE: 201601
